FAERS Safety Report 8919015 (Version 2)
Quarter: 2012Q4

REPORT INFORMATION
  Report Type: 
  Country: BE (occurrence: BE)
  Receive Date: 20121121
  Receipt Date: 20121204
  Transmission Date: 20130627
  Serious: Yes (Hospitalization, Other)
  Sender: FDA-Public Use
  Company Number: BE-PFIZER INC-2012289772

PATIENT
  Age: 46 Year
  Sex: Female

DRUGS (8)
  1. LAMOTRIGINE [Suspect]
     Indication: SEIZURE
     Dosage: UNK
  2. LAMOTRIGINE [Interacting]
     Indication: HYPOXIC-ISCHAEMIC ENCEPHALOPATHY
  3. GABAPENTIN [Interacting]
     Indication: SEIZURES
     Dosage: UNK
  4. GABAPENTIN [Interacting]
     Indication: HYPOXIC-ISCHEMIC ENCEPHALOPATHY
  5. LEVETIRACETAM [Interacting]
     Indication: SEIZURES
     Dosage: UNK
  6. LEVETIRACETAM [Interacting]
     Indication: HYPOXIC-ISCHEMIC ENCEPHALOPATHY
  7. VALPROIC ACID [Interacting]
     Indication: SEIZURES
     Dosage: UNK
  8. VALPROIC ACID [Interacting]
     Indication: HYPOXIC-ISCHEMIC ENCEPHALOPATHY

REACTIONS (9)
  - Drug interaction [Unknown]
  - Incorrect dose administered [Unknown]
  - Hypothermia [Recovered/Resolved]
  - Decreased appetite [Recovering/Resolving]
  - Apathy [Recovering/Resolving]
  - Hypoxia [Recovering/Resolving]
  - Hypotension [Recovering/Resolving]
  - Mental disorder [Recovering/Resolving]
  - Motor dysfunction [Unknown]
